FAERS Safety Report 20015971 (Version 1)
Quarter: 2021Q4

REPORT INFORMATION
  Report Type: Spontaneous
  Country: US (occurrence: None)
  Receive Date: 20211102
  Receipt Date: 20211102
  Transmission Date: 20220304
  Serious: No
  Sender: FDA-Public Use
  Company Number: None

PATIENT
  Age: 78 Year
  Sex: Female
  Weight: 70 kg

DRUGS (1)
  1. CASIRIVIMAB\IMDEVIMAB [Suspect]
     Active Substance: CASIRIVIMAB\IMDEVIMAB
     Indication: COVID-19
     Dosage: OTHER FREQUENCY : ONCE;?
     Route: 042
     Dates: end: 20210717

REACTIONS (6)
  - Hypoxia [None]
  - Pneumonia staphylococcal [None]
  - Ischaemic stroke [None]
  - Cardiac ventricular thrombosis [None]
  - Mouth haemorrhage [None]
  - Hypotension [None]

NARRATIVE: CASE EVENT DATE: 20210716
